FAERS Safety Report 4938476-3 (Version None)
Quarter: 2006Q1

REPORT INFORMATION
  Report Type: 
  Country: None (occurrence: None)
  Receive Date: 20060302
  Receipt Date: 20060208
  Transmission Date: 20060701
  Serious: Yes (Hospitalization)
  Sender: FDA-Public Use
  Company Number: FR200602001526

PATIENT
  Age: 67 Year
  Sex: Female

DRUGS (13)
  1. FORTEO [Suspect]
     Indication: OSTEOPOROSIS
     Dosage: 20 UG, DAILY (1/D), SUBCUTANEOUS
     Route: 058
     Dates: start: 20060204
  2. FORTEO [Concomitant]
  3. CACIT D3 (CALCIUM CARBONATE, COLECALCIFEROL) [Concomitant]
  4. COUMADIN [Concomitant]
  5. HEMIGOXINE NATIVELLE (DIGOXIN) TABLET [Concomitant]
  6. POTASSIUM CHLORIDE [Concomitant]
  7. OMEPRAZOLE [Concomitant]
  8. RIVOTRIL (CLONAZEPAM) DROP [Concomitant]
  9. ZESTRIL [Concomitant]
  10. CIPRALAN [Concomitant]
  11. DI-ANTALVIC (DEXTROPROPOXYPHENE HYDROCHLORIDE, PARACETAMOL) TABLET [Concomitant]
  12. FORADIL [Concomitant]
  13. COMBIVENT [Concomitant]

REACTIONS (12)
  - EAR DISORDER [None]
  - EAR PAIN [None]
  - INFLAMMATION [None]
  - OESOPHAGEAL DISORDER [None]
  - OESOPHAGEAL PAIN [None]
  - ORAL PAIN [None]
  - PAIN [None]
  - POLYCHONDRITIS [None]
  - RHINALGIA [None]
  - RHINITIS [None]
  - SINUSITIS [None]
  - STOMATITIS [None]
